FAERS Safety Report 17269467 (Version 1)
Quarter: 2020Q1

REPORT INFORMATION
  Report Type: Spontaneous
  Country: JP (occurrence: JP)
  Receive Date: 20200114
  Receipt Date: 20200114
  Transmission Date: 20200409
  Serious: Yes (Other)
  Sender: FDA-Public Use
  Company Number: NVSC2020JP006582

PATIENT
  Age: 76 Year
  Sex: Male

DRUGS (1)
  1. ZOLEDRONIC ACID [Suspect]
     Active Substance: ZOLEDRONIC ACID
     Indication: PROSTATE CANCER METASTATIC
     Dosage: UNK
     Route: 042

REACTIONS (4)
  - Hypoaesthesia [Recovered/Resolved]
  - Facial pain [Recovered/Resolved]
  - Product use in unapproved indication [Unknown]
  - Osteonecrosis of jaw [Recovered/Resolved]
